FAERS Safety Report 4734357-9 (Version None)
Quarter: 2005Q3

REPORT INFORMATION
  Report Type: 
  Country: None (occurrence: None)
  Receive Date: 20050729
  Receipt Date: 20050718
  Transmission Date: 20060218
  Serious: Yes (Other)
  Sender: FDA-Public Use
  Company Number: 2005BI007393

PATIENT
  Age: 45 Year
  Sex: Female

DRUGS (24)
  1. AVONEX [Suspect]
     Indication: MULTIPLE SCLEROSIS
     Dosage: 30 UG; QW; IM
     Route: 030
     Dates: start: 20020731, end: 20050309
  2. AVONEX [Suspect]
     Indication: MULTIPLE SCLEROSIS
     Dosage: 30 UG; QW; IM
     Route: 030
     Dates: start: 20050331
  3. BETA BLOCKER [Concomitant]
  4. CYLERT [Concomitant]
  5. ZYRTEC-D 12 HOUR [Concomitant]
  6. CYTOXAN [Concomitant]
  7. MESNA [Concomitant]
  8. KYTRIL [Concomitant]
  9. NEURONTIN [Concomitant]
  10. TYLENOL (CAPLET) [Concomitant]
  11. LEXAPRO [Concomitant]
  12. VALTREX [Concomitant]
  13. ASPIRIN [Concomitant]
  14. ARANESP [Concomitant]
  15. MOBIC [Concomitant]
  16. NEULASTA [Concomitant]
  17. ZOFRAN [Concomitant]
  18. RESTASIS [Concomitant]
  19. VOLTRAM [Concomitant]
  20. MULTI-VITAMIN [Concomitant]
  21. CALCIUM VITAMIN D [Concomitant]
  22. TOPROL-XL [Concomitant]
  23. SOLU-MEDROL [Concomitant]
  24. AMBIEN [Concomitant]

REACTIONS (10)
  - AUTONOMIC NERVOUS SYSTEM IMBALANCE [None]
  - BLOOD PRESSURE DECREASED [None]
  - DYSPNOEA [None]
  - FLUSHING [None]
  - INSOMNIA [None]
  - LEFT VENTRICULAR FAILURE [None]
  - NUCLEAR MAGNETIC RESONANCE IMAGING BRAIN ABNORMAL [None]
  - SINUS TACHYCARDIA [None]
  - TACHYCARDIA [None]
  - TEMPERATURE INTOLERANCE [None]
